FAERS Safety Report 7471407-3 (Version None)
Quarter: 2011Q2

REPORT INFORMATION
  Report Type: 
  Country: None (occurrence: None)
  Receive Date: 20110511
  Receipt Date: 20110503
  Transmission Date: 20111010
  Serious: No
  Sender: FDA-Public Use
  Company Number: US-BAYER-2011-038010

PATIENT
  Sex: Male

DRUGS (1)
  1. AVELOX [Suspect]
     Indication: INFECTION

REACTIONS (1)
  - MYALGIA [None]
